FAERS Safety Report 9954911 (Version 2)
Quarter: 2014Q1

REPORT INFORMATION
  Report Type: Report from Study
  Country: US (occurrence: US)
  Receive Date: 20140304
  Receipt Date: 20140320
  Transmission Date: 20141002
  Serious: Yes (Other)
  Sender: FDA-Public Use
  Company Number: PHEH2014US004332

PATIENT
  Age: 52 Year
  Sex: Female
  Weight: 53.52 kg

DRUGS (2)
  1. GILENYA [Suspect]
     Indication: MULTIPLE SCLEROSIS
     Dosage: 0.5 MG, QD
     Route: 048
     Dates: start: 20110225
  2. GILENYA [Suspect]
     Dosage: 0.5 MG, QOD
     Dates: start: 20130823, end: 20140227

REACTIONS (3)
  - Invasive ductal breast carcinoma [Not Recovered/Not Resolved]
  - White blood cell count decreased [Recovering/Resolving]
  - Prescribed underdose [Unknown]
